FAERS Safety Report 23971257 (Version 2)
Quarter: 2024Q3

REPORT INFORMATION
  Report Type: Spontaneous
  Country: US (occurrence: US)
  Receive Date: 20240613
  Receipt Date: 20240909
  Transmission Date: 20241016
  Serious: Yes (Other)
  Sender: INSUD PHARMA
  Company Number: US-INSUD PHARMA-2406US04454

PATIENT

DRUGS (1)
  1. SLYND [Suspect]
     Active Substance: DROSPIRENONE
     Indication: Menstrual cycle management
     Dosage: UNK
     Route: 048
     Dates: start: 20240419, end: 20240605

REACTIONS (4)
  - Uterine haemorrhage [Recovered/Resolved]
  - Abnormal menstrual clots [Recovered/Resolved]
  - Feeling cold [Recovered/Resolved]
  - Product use in unapproved indication [Unknown]

NARRATIVE: CASE EVENT DATE: 20240101
